FAERS Safety Report 16639786 (Version 1)
Quarter: 2019Q3

REPORT INFORMATION
  Report Type: Report from Study
  Country: None (occurrence: CA)
  Receive Date: 20190727
  Receipt Date: 20190727
  Transmission Date: 20191004
  Serious: Yes (Hospitalization)
  Sender: FDA-Public Use
  Company Number: CA-ABBVIE-19K-028-2865420-00

PATIENT
  Age: 43 Year
  Sex: Female

DRUGS (2)
  1. HUMIRA [Suspect]
     Active Substance: ADALIMUMAB
     Indication: CROHN^S DISEASE
     Route: 058
     Dates: start: 20180308, end: 20190710
  2. HUMIRA [Suspect]
     Active Substance: ADALIMUMAB
     Route: 058
     Dates: start: 20190714

REACTIONS (10)
  - Tongue discomfort [Recovering/Resolving]
  - Tongue disorder [Recovering/Resolving]
  - Night sweats [Unknown]
  - Injection site pain [Not Recovered/Not Resolved]
  - Depression [Unknown]
  - Swollen tongue [Recovering/Resolving]
  - Hypophagia [Unknown]
  - Insomnia [Unknown]
  - Stomatitis [Unknown]
  - Oral disorder [Recovering/Resolving]

NARRATIVE: CASE EVENT DATE: 201907
